FAERS Safety Report 9656302 (Version 1)
Quarter: 2013Q4

REPORT INFORMATION
  Report Type: Spontaneous
  Country: US (occurrence: US)
  Receive Date: 20131030
  Receipt Date: 20131030
  Transmission Date: 20140711
  Serious: No
  Sender: FDA-Public Use
  Company Number: US-PFIZER INC-2013309510

PATIENT
  Age: 37 Year
  Sex: Female
  Weight: 61.22 kg

DRUGS (5)
  1. DILANTIN [Suspect]
     Indication: EPILEPSY
     Dosage: 300 MG, 1X/DAY
     Route: 048
  2. DILANTIN [Suspect]
     Dosage: TWO 100MG CAPSULES AND ONE 50MG TABLET, 1X/DAY
     Route: 048
  3. DILANTIN [Suspect]
     Indication: EPILEPSY
     Dosage: 50 MG, 1X/DAY (TWO 100MG CAPSULES AND ONE 50MG TABLET ONCE A DAY)
     Route: 048
  4. LEVOXYL [Concomitant]
     Indication: HYPOTHYROIDISM
     Dosage: UNK
  5. SEROQUEL [Concomitant]
     Dosage: 600 MG, UNK

REACTIONS (1)
  - Drug level fluctuating [Unknown]
